FAERS Safety Report 23002197 (Version 3)
Quarter: 2023Q4

REPORT INFORMATION
  Report Type: Spontaneous
  Country: US (occurrence: US)
  Receive Date: 20230928
  Receipt Date: 20231026
  Transmission Date: 20240110
  Serious: No
  Sender: FDA-Public Use
  Company Number: US-SA-SAC20230922001166

PATIENT
  Sex: Female

DRUGS (3)
  1. DUPIXENT [Suspect]
     Active Substance: DUPILUMAB
     Indication: Dermatitis atopic
     Dosage: 300 MG, QOW
     Route: 058
     Dates: start: 202206
  2. OFEV [Suspect]
     Active Substance: NINTEDANIB
     Indication: Interstitial lung disease
     Dosage: UNK
     Route: 065
  3. ONDANSETRON [Concomitant]
     Active Substance: ONDANSETRON

REACTIONS (6)
  - Nausea [Unknown]
  - Abdominal pain upper [Unknown]
  - Vomiting [Unknown]
  - Decreased appetite [Unknown]
  - Diarrhoea [Unknown]
  - Headache [Unknown]
